FAERS Safety Report 4348989-3 (Version None)
Quarter: 2004Q2

REPORT INFORMATION
  Report Type: 
  Country: None (occurrence: None)
  Receive Date: 20040427
  Receipt Date: 20040427
  Transmission Date: 20050107
  Serious: Yes (Hospitalization)
  Sender: FDA-Public Use
  Company Number: None

PATIENT
  Sex: Male
  Weight: 74 kg

DRUGS (6)
  1. ZOMETA [Suspect]
     Indication: PROSTATE CANCER
     Dosage: 4 MG
     Dates: start: 20031023
  2. LUPRON [Suspect]
     Dosage: 22.5 MG
     Dates: start: 20031031
  3. LUPRON [Suspect]
     Dosage: 22.5 MG
     Dates: start: 20040115
  4. LUPRON [Suspect]
     Dosage: 22.5 MG
     Dates: start: 20040412
  5. METOPROLOL [Concomitant]
  6. NITRO [Concomitant]

REACTIONS (5)
  - BLOOD CREATININE INCREASED [None]
  - HYPERCALCAEMIA [None]
  - NODULE [None]
  - PLATELET COUNT DECREASED [None]
  - PROSTATIC SPECIFIC ANTIGEN INCREASED [None]
